FAERS Safety Report 8308459-4 (Version None)
Quarter: 2012Q2

REPORT INFORMATION
  Report Type: 
  Country: None (occurrence: None)
  Receive Date: 20120420
  Receipt Date: 20120412
  Transmission Date: 20120825
  Serious: Yes (Hospitalization, Other)
  Sender: FDA-Public Use
  Company Number: ADR-2012-00732

PATIENT
  Age: 17 Year
  Sex: Male

DRUGS (1)
  1. BACLOFEN [Suspect]

REACTIONS (21)
  - HAEMOGLOBIN DECREASED [None]
  - ASPARTATE AMINOTRANSFERASE INCREASED [None]
  - HAEMATOCRIT DECREASED [None]
  - BLOOD SODIUM INCREASED [None]
  - BLOOD LACTATE DEHYDROGENASE INCREASED [None]
  - BLOOD UREA DECREASED [None]
  - BLOOD ALBUMIN DECREASED [None]
  - BLOOD UREA INCREASED [None]
  - RED BLOOD CELL COUNT DECREASED [None]
  - BLOOD POTASSIUM DECREASED [None]
  - DEVICE OCCLUSION [None]
  - BLOOD CALCIUM DECREASED [None]
  - LYMPHOCYTE COUNT DECREASED [None]
  - WOUND INFECTION [None]
  - DRUG WITHDRAWAL SYNDROME [None]
  - BLOOD CHLORIDE INCREASED [None]
  - IMPLANT SITE INFECTION [None]
  - BLOOD CREATININE DECREASED [None]
  - C-REACTIVE PROTEIN INCREASED [None]
  - PLATELET COUNT INCREASED [None]
  - PLATELET COUNT DECREASED [None]
